FAERS Safety Report 4811047-5 (Version None)
Quarter: 2005Q4

REPORT INFORMATION
  Report Type: 
  Country: None (occurrence: None)
  Receive Date: 20051027
  Receipt Date: 20051021
  Transmission Date: 20060501
  Serious: Yes (Hospitalization)
  Sender: FDA-Public Use
  Company Number: CH-JNJFOC-20051004745

PATIENT
  Sex: Female

DRUGS (2)
  1. ORTHO EVRA [Suspect]
     Indication: CONTRACEPTION
     Route: 062
  2. PENTASA [Concomitant]
     Indication: CROHN'S DISEASE
     Route: 065

REACTIONS (1)
  - HAEMOLYTIC URAEMIC SYNDROME [None]
